FAERS Safety Report 9729451 (Version 1)
Quarter: 2013Q4

REPORT INFORMATION
  Report Type: Spontaneous
  Country: US (occurrence: US)
  Receive Date: 20131204
  Receipt Date: 20131204
  Transmission Date: 20140711
  Serious: No
  Sender: FDA-Public Use
  Company Number: US-GILEAD-2009-0021461

PATIENT
  Sex: Male
  Weight: 147.42 kg

DRUGS (16)
  1. LETAIRIS [Suspect]
     Indication: PULMONARY ARTERIAL HYPERTENSION
     Route: 048
     Dates: start: 20080912
  2. REVATIO [Concomitant]
  3. LASIX [Concomitant]
  4. SPIRONOLACTONE [Concomitant]
  5. VERELAN [Concomitant]
  6. DIGOXIN [Concomitant]
  7. LEVOXYL [Concomitant]
  8. WELLBUTRIN XL [Concomitant]
  9. ALLOPURINOL [Concomitant]
  10. COLCHICINE [Concomitant]
  11. MIRAPEX [Concomitant]
  12. ASTELIN [Concomitant]
  13. NASACORT [Concomitant]
  14. PLAVIX [Concomitant]
  15. COMPLETE MULTIVITAMIN [Concomitant]
  16. POTASSIUM CHLORIDE [Concomitant]

REACTIONS (2)
  - Fluid retention [Unknown]
  - Oedema peripheral [Unknown]
